FAERS Safety Report 4840043-7 (Version None)
Quarter: 2005Q4

REPORT INFORMATION
  Report Type: 
  Country: None (occurrence: None)
  Receive Date: 20051125
  Receipt Date: 20051121
  Transmission Date: 20060501
  Serious: Yes (Life-Threatening, Hospitalization)
  Sender: FDA-Public Use
  Company Number: TR-2005-007581

PATIENT
  Age: 61 Year
  Sex: Male

DRUGS (5)
  1. ULTRAVIST 370 [Suspect]
     Indication: ARTERIOGRAM CORONARY
     Dosage: 200 ML, 1 DOSE, INTRA-ARTERIAL
     Route: 013
     Dates: start: 20050512, end: 20050512
  2. ECOPRIN (ACETYLSALICYLIC ACID) [Concomitant]
  3. BELOC [Concomitant]
  4. PLAVIX [Concomitant]
  5. LIPITOR [Concomitant]

REACTIONS (1)
  - CEREBROVASCULAR ACCIDENT [None]
